FAERS Safety Report 4721222-6 (Version None)
Quarter: 2005Q3

REPORT INFORMATION
  Report Type: 
  Country: None (occurrence: None)
  Receive Date: 20050720
  Receipt Date: 20050708
  Transmission Date: 20060218
  Serious: Yes (Hospitalization, Other)
  Sender: FDA-Public Use
  Company Number: 2005093889

PATIENT
  Age: 61 Year
  Sex: Female

DRUGS (1)
  1. XALATAN [Suspect]
     Indication: GLAUCOMA
     Dosage: 1 DROP (1 DROP, QD) OPHTHALMIC
     Route: 047
     Dates: start: 20040101

REACTIONS (4)
  - CONDITION AGGRAVATED [None]
  - DIABETES MELLITUS [None]
  - GASTRITIS [None]
  - HELICOBACTER INFECTION [None]
